FAERS Safety Report 6223303-7 (Version None)
Quarter: 2009Q2

REPORT INFORMATION
  Report Type: 
  Country: None (occurrence: None)
  Receive Date: 20090611
  Receipt Date: 20090609
  Transmission Date: 20091009
  Serious: Yes (Other)
  Sender: FDA-Public Use
  Company Number: US-B.I. PHARMACEUTICALS,INC./RIDGEFIELD-2009-BP-03900PF

PATIENT
  Sex: Male
  Weight: 60.78 kg

DRUGS (9)
  1. SPIRIVA [Suspect]
     Indication: CHRONIC OBSTRUCTIVE PULMONARY DISEASE
     Dosage: 18MCG
     Route: 055
     Dates: start: 20090324
  2. CHANTIX [Suspect]
     Indication: SMOKING CESSATION THERAPY
     Dosage: .5MG
     Route: 048
     Dates: start: 20090324
  3. XOPENEX [Concomitant]
  4. SYMBICORT [Concomitant]
  5. MULTI-VITAMIN [Concomitant]
  6. FLOMAX [Concomitant]
  7. EQUATE ALLERGY MEDICATION [Concomitant]
  8. NEXIUM [Concomitant]
  9. LOVASTATIN [Concomitant]

REACTIONS (2)
  - ABNORMAL DREAMS [None]
  - DYSPNOEA [None]
